FAERS Safety Report 5114136-3 (Version None)
Quarter: 2006Q3

REPORT INFORMATION
  Report Type: 
  Country: None (occurrence: None)
  Receive Date: 20060925
  Receipt Date: 20060831
  Transmission Date: 20061208
  Serious: Yes (Hospitalization, Other)
  Sender: FDA-Public Use
  Company Number: AU-BRISTOL-MYERS SQUIBB COMPANY-13501804

PATIENT
  Sex: Male
  Weight: 103 kg

DRUGS (7)
  1. HOLOXAN [Suspect]
     Indication: HODGKIN'S DISEASE
     Dates: start: 20060731
  2. MESNA [Concomitant]
  3. CARBOPLATIN [Concomitant]
  4. ETOPOSIDE [Concomitant]
  5. DIFLUCAN [Concomitant]
  6. BACTRIM [Concomitant]
  7. AVANZA [Concomitant]

REACTIONS (2)
  - ENCEPHALOPATHY [None]
  - RENAL FAILURE ACUTE [None]
